FAERS Safety Report 21959336 (Version 1)
Quarter: 2023Q1

REPORT INFORMATION
  Report Type: Spontaneous
  Country: US (occurrence: US)
  Receive Date: 20230206
  Receipt Date: 20230206
  Transmission Date: 20230417
  Serious: No
  Sender: FDA-Public Use
  Company Number: US-BAYER-2023A013373

PATIENT
  Age: 78 Year
  Sex: Female

DRUGS (1)
  1. MIRALAX [Suspect]
     Active Substance: POLYETHYLENE GLYCOL 3350
     Dosage: 1 DOSE IN A DAY
     Route: 048
     Dates: start: 202212, end: 202301

REACTIONS (1)
  - Skin odour abnormal [Not Recovered/Not Resolved]

NARRATIVE: CASE EVENT DATE: 20221201
